FAERS Safety Report 9725340 (Version 2)
Quarter: 2014Q1

REPORT INFORMATION
  Report Type: Spontaneous
  Country: US (occurrence: None)
  Receive Date: 20131129
  Receipt Date: 20140325
  Transmission Date: 20141002
  Serious: Yes (Other)
  Sender: FDA-Public Use
  Company Number: 2013-US-003592

PATIENT
  Age: 45 Year
  Sex: Female

DRUGS (1)
  1. XYREM [Suspect]
     Indication: HYPERSOMNIA
     Route: 048
     Dates: start: 20100423

REACTIONS (7)
  - Ophthalmoplegia [None]
  - Psoriatic arthropathy [None]
  - Psoriasis [None]
  - Muscle spasticity [None]
  - Migraine [None]
  - Hypertension [None]
  - Off label use [None]
